FAERS Safety Report 18228625 (Version 1)
Quarter: 2020Q3

REPORT INFORMATION
  Report Type: Spontaneous
  Country: US (occurrence: US)
  Receive Date: 20200903
  Receipt Date: 20200903
  Transmission Date: 20201103
  Serious: No
  Sender: FDA-Public Use
  Company Number: US-BECTON DICKINSON-2020BDN00105

PATIENT
  Age: 63 Year
  Sex: Male
  Weight: 99.32 kg

DRUGS (1)
  1. CHLORAPREP WITH TINT [Suspect]
     Active Substance: CHLORHEXIDINE GLUCONATE\ISOPROPYL ALCOHOL
     Indication: INFECTION PROPHYLAXIS
     Dosage: UNK
     Route: 061
     Dates: start: 20200221, end: 20200221

REACTIONS (6)
  - Skin exfoliation [Not Recovered/Not Resolved]
  - Application site irritation [Recovered/Resolved]
  - Pruritus [Unknown]
  - Incision site haemorrhage [Recovered/Resolved]
  - Incision site erythema [Recovering/Resolving]
  - Application site rash [Recovering/Resolving]

NARRATIVE: CASE EVENT DATE: 2020
